FAERS Safety Report 18343636 (Version 1)
Quarter: 2020Q4

REPORT INFORMATION
  Report Type: Report from Study
  Country: US (occurrence: US)
  Receive Date: 20201005
  Receipt Date: 20201005
  Transmission Date: 20210113
  Serious: Yes (Hospitalization, Other)
  Sender: FDA-Public Use
  Company Number: US-TEVA-2020-US-1834152

PATIENT
  Age: 39 Year
  Sex: Female

DRUGS (1)
  1. COPAXONE [Suspect]
     Active Substance: GLATIRAMER ACETATE
     Indication: MULTIPLE SCLEROSIS
     Route: 058
     Dates: start: 20200821

REACTIONS (4)
  - Immunosuppression [Recovering/Resolving]
  - Primary progressive multiple sclerosis [Unknown]
  - Seizure [Recovering/Resolving]
  - Meningitis viral [Recovering/Resolving]

NARRATIVE: CASE EVENT DATE: 2020
